FAERS Safety Report 6012320-8 (Version None)
Quarter: 2008Q4

REPORT INFORMATION
  Report Type: 
  Country: None (occurrence: None)
  Receive Date: 20081218
  Receipt Date: 20080822
  Transmission Date: 20090506
  Serious: No
  Sender: FDA-Public Use
  Company Number: US-ASTRAZENECA-2007UW21303

PATIENT
  Sex: Female

DRUGS (4)
  1. SYMBICORT [Suspect]
     Indication: CHRONIC OBSTRUCTIVE PULMONARY DISEASE
     Dosage: 160/4.5 MCG
     Route: 055
  2. ADVAIR DISKUS 250/50 [Concomitant]
     Dosage: 250/50
  3. COMBIVENT [Concomitant]
     Dosage: SEVERAL TIMES A DAY
     Route: 055
  4. SPIRIVA [Concomitant]

REACTIONS (3)
  - DRUG INEFFECTIVE [None]
  - DYSPNOEA [None]
  - RASH [None]
